FAERS Safety Report 17741923 (Version 1)
Quarter: 2020Q2

REPORT INFORMATION
  Report Type: Spontaneous
  Country: GB (occurrence: GB)
  Receive Date: 20200504
  Receipt Date: 20200504
  Transmission Date: 20200714
  Serious: Yes (Death)
  Sender: FDA-Public Use
  Company Number: GB-PFIZER INC-2020175685

PATIENT
  Age: 76 Year
  Sex: Female

DRUGS (5)
  1. CLARITHROMYCIN. [Suspect]
     Active Substance: CLARITHROMYCIN
     Dosage: 500 MG, 2X/DAY
  2. DEXAMETHASONE SODIUM PHOSPHATE. [Suspect]
     Active Substance: DEXAMETHASONE SODIUM PHOSPHATE
     Dosage: 6 MG, WEEKLY
  3. FRAGMIN [Suspect]
     Active Substance: DALTEPARIN SODIUM
     Dosage: 5000 (UNIT UNSPECIFIED), DAILY
  4. ACICLOVIR [Suspect]
     Active Substance: ACYCLOVIR
     Dosage: 400 MG, 2X/DAY
  5. IMNOVID [Suspect]
     Active Substance: POMALIDOMIDE
     Dosage: 2 MG, DAILY

REACTIONS (1)
  - Death [Fatal]
